FAERS Safety Report 5249386-9 (Version None)
Quarter: 2007Q1

REPORT INFORMATION
  Report Type: 
  Country: None (occurrence: None)
  Receive Date: 20070228
  Receipt Date: 20061206
  Transmission Date: 20070707
  Serious: No
  Sender: FDA-Public Use
  Company Number: US-GLAXOSMITHKLINE-A0621285A

PATIENT
  Age: 49 Year
  Sex: Female

DRUGS (13)
  1. VALTREX [Suspect]
     Dosage: 500MG VARIABLE DOSE
     Route: 048
  2. FLUOCINONIDE [Concomitant]
  3. ZYRTEC [Concomitant]
  4. NASACORT AQ [Concomitant]
  5. FEXOFENADINE HCL [Concomitant]
  6. SYMAX DUOTAB [Concomitant]
  7. CELEBREX [Concomitant]
  8. LEVOTHYROXINE SODIUM [Concomitant]
  9. FAMVIR [Concomitant]
  10. ZOVIRAX [Concomitant]
  11. HYDROXYZINE HCL [Concomitant]
  12. PROPOXYPHENE NAPSYLATE AND ACETAMINOPHEN [Concomitant]
  13. LIDOCAINE OINTMENT [Concomitant]

REACTIONS (3)
  - DECREASED IMMUNE RESPONSIVENESS [None]
  - DRUG EFFECT DECREASED [None]
  - HYPERSENSITIVITY [None]
